FAERS Safety Report 15163820 (Version 1)
Quarter: 2018Q3

REPORT INFORMATION
  Report Type: Spontaneous
  Country: DE (occurrence: DE)
  Receive Date: 20180719
  Receipt Date: 20180719
  Transmission Date: 20181010
  Serious: Yes (Death, Hospitalization)
  Sender: FDA-Public Use
  Company Number: DE-009507513-2005-06-0834

PATIENT
  Age: 70 Year
  Sex: Female
  Weight: 56 kg

DRUGS (7)
  1. REMERGIL [Concomitant]
     Active Substance: MIRTAZAPINE
     Dosage: 4 MG, UNK
     Route: 048
  2. PANTOZOL [Concomitant]
     Active Substance: PANTOPRAZOLE SODIUM
     Dosage: UNK
     Route: 048
  3. THERAPEUTIC RADIOPHARMACEUTICAL (UNSPECIFIED) [Concomitant]
     Active Substance: UNSPECIFIED INGREDIENT
     Indication: GLIOMA
     Dosage: DOSE: 60 GY DURATION: 1 DAY(S)
     Route: 065
     Dates: start: 200503, end: 200503
  4. FORTECORTIN [Concomitant]
     Active Substance: DEXAMETHASONE
     Dosage: 8MG, QD (ALSO REPORTED AS 4 MG,QD)
     Route: 048
  5. TEMODAL [Suspect]
     Active Substance: TEMOZOLOMIDE
     Indication: GLIOMA
     Dosage: 75 MG/M^2 1 MONTH(S)
     Route: 048
     Dates: start: 20050328, end: 20050430
  6. TAVOR (LORAZEPAM) [Concomitant]
     Active Substance: LORAZEPAM
     Dosage: UNK
     Route: 048
  7. FORTECORTIN [Concomitant]
     Active Substance: DEXAMETHASONE
     Dosage: 8 MG, QD
     Route: 048
     Dates: start: 200505

REACTIONS (6)
  - Pneumonitis [Fatal]
  - Electrolyte imbalance [Fatal]
  - Venous thrombosis [Fatal]
  - Agranulocytosis [Fatal]
  - Cardiac failure [Fatal]
  - Respiratory failure [Fatal]

NARRATIVE: CASE EVENT DATE: 20050328
